FAERS Safety Report 9090214 (Version 3)
Quarter: 2013Q1

REPORT INFORMATION
  Report Type: Spontaneous
  Country: IE (occurrence: IE)
  Receive Date: 20130131
  Receipt Date: 20130319
  Transmission Date: 20140127
  Serious: Yes (Other)
  Sender: FDA-Public Use
  Company Number: IE-BAXTER-2013BAX003761

PATIENT
  Sex: Male

DRUGS (6)
  1. GLUCOSE 5% W/V INTRAVENOUS INFUSION BP, POLYOLEFIN/POLYAMIDE BAG [Suspect]
     Indication: RECTOSIGMOID CANCER METASTATIC
     Route: 042
     Dates: start: 20121003, end: 20121003
  2. OXALIPLATIN [Suspect]
     Indication: RECTOSIGMOID CANCER METASTATIC
     Route: 042
     Dates: start: 20121003, end: 20121104
  3. 5 FU [Concomitant]
     Indication: PRODUCT USED FOR UNKNOWN INDICATION
     Route: 065
     Dates: start: 20121003
  4. SODIUM CHLORIDE [Concomitant]
     Indication: PRODUCT USED FOR UNKNOWN INDICATION
     Route: 042
  5. FOLINIC ACID [Concomitant]
     Indication: PRODUCT USED FOR UNKNOWN INDICATION
     Route: 042
  6. CETUXIMAB [Concomitant]
     Indication: PRODUCT USED FOR UNKNOWN INDICATION
     Route: 065

REACTIONS (4)
  - Flushing [Recovered/Resolved]
  - Chest discomfort [Recovered/Resolved]
  - Back pain [Recovered/Resolved]
  - Back pain [Recovered/Resolved]
